FAERS Safety Report 10266828 (Version 1)
Quarter: 2014Q2

REPORT INFORMATION
  Report Type: Spontaneous
  Country: US (occurrence: None)
  Receive Date: 20140626
  Receipt Date: 20140626
  Transmission Date: 20141212
  Serious: Yes (Disabling)
  Sender: FDA-Public Use
  Company Number: None

PATIENT
  Age: 82 Year
  Sex: Female
  Weight: 58.97 kg

DRUGS (1)
  1. JANTOVEN [Suspect]
     Indication: DRUG LEVEL CHANGED
     Route: 048
     Dates: start: 20140312, end: 20140312

REACTIONS (1)
  - Heart rate irregular [None]
